FAERS Safety Report 9408380 (Version 1)
Quarter: 2013Q3

REPORT INFORMATION
  Report Type: Spontaneous
  Country: US (occurrence: US)
  Receive Date: 20130718
  Receipt Date: 20130718
  Transmission Date: 20140515
  Serious: No
  Sender: FDA-Public Use
  Company Number: US-BAUSCH-BL-2013-002572

PATIENT
  Age: 77 Year
  Sex: Female

DRUGS (3)
  1. LOTEMAX (LOTEPREDNOL ETABONATE OPHTHALMIC GEL 0.5%) [Suspect]
     Indication: POSTOPERATIVE CARE
     Dosage: 1 DROP; THREE TIMES A DAY; LEFT EYE
     Route: 047
     Dates: start: 20130409
  2. BROMDAY 0.09% [Concomitant]
     Indication: PRODUCT USED FOR UNKNOWN INDICATION
     Dosage: DROP; OPHTHALMIC
     Route: 047
  3. BESIVANCE (BESIFLOXACIN OPHTHALMIC SUSPENSION) 0.6% [Concomitant]
     Indication: PRODUCT USED FOR UNKNOWN INDICATION
     Dosage: DROP; OPHTHALMIC
     Route: 047

REACTIONS (3)
  - Wrong technique in drug usage process [Unknown]
  - Ocular hyperaemia [Recovered/Resolved]
  - Eye inflammation [Recovered/Resolved]
